FAERS Safety Report 17560679 (Version 3)
Quarter: 2020Q3

REPORT INFORMATION
  Report Type: Spontaneous
  Country: US (occurrence: US)
  Receive Date: 20200319
  Receipt Date: 20200728
  Transmission Date: 20201102
  Serious: No
  Sender: FDA-Public Use
  Company Number: NVSC2020US074470

PATIENT
  Sex: Female

DRUGS (1)
  1. XIIDRA [Suspect]
     Active Substance: LIFITEGRAST
     Indication: PRODUCT USED FOR UNKNOWN INDICATION
     Dosage: 5 % (2X A DAY)
     Route: 065
     Dates: start: 20200109

REACTIONS (5)
  - Eye irritation [Unknown]
  - Abnormal sensation in eye [Unknown]
  - Vision blurred [Unknown]
  - Pruritus [Unknown]
  - Ocular hyperaemia [Unknown]
